FAERS Safety Report 16389040 (Version 2)
Quarter: 2019Q2

REPORT INFORMATION
  Report Type: Spontaneous
  Country: AU (occurrence: AU)
  Receive Date: 20190604
  Receipt Date: 20190607
  Transmission Date: 20190711
  Serious: Yes (Hospitalization, Other)
  Sender: FDA-Public Use
  Company Number: AU-GLAXOSMITHKLINE-AU2019GSK097513

PATIENT
  Age: 39 Year
  Sex: Male
  Weight: 127 kg

DRUGS (7)
  1. ARIPIPRAZOLE. [Suspect]
     Active Substance: ARIPIPRAZOLE
     Indication: PRODUCT USED FOR UNKNOWN INDICATION
     Dosage: 120 MG, UNK
     Route: 065
  2. NICOTINE. [Suspect]
     Active Substance: NICOTINE
     Indication: SMOKING CESSATION THERAPY
     Dosage: UNK
     Route: 065
  3. MOCLOBEMIDE [Suspect]
     Active Substance: MOCLOBEMIDE
     Indication: PRODUCT USED FOR UNKNOWN INDICATION
     Dosage: 300 MG, BID
     Route: 065
  4. SYMBICORT [Suspect]
     Active Substance: BUDESONIDE\FORMOTEROL FUMARATE DIHYDRATE
     Indication: PRODUCT USED FOR UNKNOWN INDICATION
     Dosage: UNK
     Route: 065
  5. QUETIAPINE. [Suspect]
     Active Substance: QUETIAPINE
     Indication: PRODUCT USED FOR UNKNOWN INDICATION
     Dosage: 600 MG, QD
     Route: 065
  6. ZOPICLONE [Suspect]
     Active Substance: ZOPICLONE
     Indication: PRODUCT USED FOR UNKNOWN INDICATION
     Dosage: 15 MG, UNK (NOCTE)
     Route: 065
  7. ACAMPROSATE [Suspect]
     Active Substance: ACAMPROSATE
     Indication: PRODUCT USED FOR UNKNOWN INDICATION
     Dosage: 666 MG, TID
     Route: 065

REACTIONS (18)
  - Ejection fraction decreased [Unknown]
  - Asthma late onset [Unknown]
  - Electrocardiogram ST-T segment abnormal [Unknown]
  - Contraindicated product administered [Recovered/Resolved]
  - Vomiting [Recovered/Resolved]
  - Hypertension [Unknown]
  - Ultrasound Doppler abnormal [Unknown]
  - Blood cholesterol increased [Unknown]
  - Systolic dysfunction [Unknown]
  - Medication error [Recovered/Resolved]
  - Left ventricular dysfunction [Unknown]
  - Congestive cardiomyopathy [Unknown]
  - Dyslipidaemia [Unknown]
  - Bundle branch block right [Unknown]
  - Diastolic dysfunction [Unknown]
  - Pneumonitis chemical [Recovered/Resolved]
  - Left atrial enlargement [Unknown]
  - Right ventricular enlargement [Unknown]
